FAERS Safety Report 4980621-8 (Version None)
Quarter: 2006Q2

REPORT INFORMATION
  Report Type: 
  Country: None (occurrence: None)
  Receive Date: 20060424
  Receipt Date: 20050913
  Transmission Date: 20061013
  Serious: Yes (Hospitalization, Other)
  Sender: FDA-Public Use
  Company Number: US-MERCK-0509USA01706

PATIENT
  Age: 55 Year
  Sex: Male
  Weight: 91 kg

DRUGS (1)
  1. VIOXX [Suspect]
     Route: 048
     Dates: start: 20010101, end: 20040101

REACTIONS (6)
  - ALCOHOLISM [None]
  - ANAEMIA [None]
  - CEREBROVASCULAR ACCIDENT [None]
  - CORONARY ARTERY DISEASE [None]
  - HIP FRACTURE [None]
  - VISION BLURRED [None]
